FAERS Safety Report 23566818 (Version 1)
Quarter: 2024Q1

REPORT INFORMATION
  Report Type: Spontaneous
  Country: CA (occurrence: CA)
  Receive Date: 20240226
  Receipt Date: 20240226
  Transmission Date: 20240409
  Serious: Yes (Hospitalization)
  Sender: FDA-Public Use
  Company Number: CA-TEVA-VS-3160665

PATIENT
  Age: 53 Year
  Sex: Female

DRUGS (3)
  1. METHYLPREDNISOLONE SODIUM SUCCINATE [Suspect]
     Active Substance: METHYLPREDNISOLONE SODIUM SUCCINATE
     Dosage: DOSAGE FORM: POWDER FOR SOLUTION INTRAMUSCULAR FOR INJECTION, USP
     Route: 065
  2. OPDIVO [Suspect]
     Active Substance: NIVOLUMAB
     Indication: Metastatic malignant melanoma
     Dosage: DOSAGE FORM: SOLUTION INTRAVENOUS  100MG/10ML?(SINGLE-USE VIAL)
     Route: 065
  3. YERVOY [Suspect]
     Active Substance: IPILIMUMAB
     Indication: Metastatic malignant melanoma
     Dosage: DOSAGE FORM: LIQUID INTRAVENOUS  FOR I.V.?INFUSION ONLY.?50MG/10ML AND?200MG/40 ML SINGLE USE?VIALS.
     Route: 065

REACTIONS (2)
  - Gastrointestinal stoma complication [Unknown]
  - Immune-mediated enterocolitis [Unknown]
